FAERS Safety Report 5714166-4 (Version None)
Quarter: 2008Q2

REPORT INFORMATION
  Report Type: 
  Country: None (occurrence: None)
  Receive Date: 20080423
  Receipt Date: 20070913
  Transmission Date: 20081010
  Serious: No
  Sender: FDA-Public Use
  Company Number: US-KINGPHARMUSA00001-K200701186

PATIENT

DRUGS (5)
  1. SKELAXIN [Suspect]
     Indication: FIBROMYALGIA
     Dosage: 800 MG, QID
     Route: 048
     Dates: start: 20070801, end: 20070909
  2. SKELAXIN [Suspect]
     Dosage: 800 MG, QD BEFORE BED
     Dates: start: 20070910
  3. SKELAXIN [Suspect]
     Dosage: 800 MG, QID
     Route: 048
     Dates: start: 20070901
  4. HYDROCODONE BITARTRATE [Concomitant]
     Indication: FIBROMYALGIA
     Dosage: 20 MG, QID
     Route: 048
  5. LYRICA [Concomitant]
     Indication: FIBROMYALGIA
     Dosage: 150 MG, BEFORE BED
     Route: 048

REACTIONS (5)
  - BALANCE DISORDER [None]
  - DIZZINESS [None]
  - GAIT DISTURBANCE [None]
  - IMPAIRED DRIVING ABILITY [None]
  - SOMNOLENCE [None]
